FAERS Safety Report 4508079-3 (Version None)
Quarter: 2004Q4

REPORT INFORMATION
  Report Type: 
  Country: None (occurrence: None)
  Receive Date: 20041123
  Receipt Date: 20031009
  Transmission Date: 20050328
  Serious: No
  Sender: FDA-Public Use
  Company Number: US-GLAXOSMITHKLINE-A0429653A

PATIENT
  Age: 72 Year
  Sex: Female

DRUGS (10)
  1. WELLBUTRIN [Suspect]
     Indication: DEPRESSION
     Dosage: 150MG TWICE PER DAY
     Route: 048
  2. DIOVAN [Concomitant]
  3. DICLOFENAC [Concomitant]
  4. PRILOSEC [Concomitant]
  5. ZOCOR [Concomitant]
  6. PLAVIX [Concomitant]
  7. ESTRADIOL [Concomitant]
  8. SYNTHROID [Concomitant]
  9. VITAMIN D [Concomitant]
  10. CALCIUM [Concomitant]

REACTIONS (1)
  - TREMOR [None]
